FAERS Safety Report 13651607 (Version 1)
Quarter: 2017Q2

REPORT INFORMATION
  Report Type: Spontaneous
  Country: EG (occurrence: EG)
  Receive Date: 20170614
  Receipt Date: 20170614
  Transmission Date: 20170830
  Serious: Yes (Other)
  Sender: FDA-Public Use
  Company Number: EG-009507513-1705EGY013191

PATIENT
  Age: 40 Year
  Sex: Male

DRUGS (4)
  1. REMERON [Suspect]
     Active Substance: MIRTAZAPINE
     Dosage: 15 MG, QD; HALF TABLET
     Route: 048
     Dates: start: 2016
  2. REMERON [Suspect]
     Active Substance: MIRTAZAPINE
     Indication: IRRITABLE BOWEL SYNDROME
     Dosage: 15 MG, QD; HALF TABLET
     Route: 048
     Dates: start: 2012, end: 201609
  3. OLMESARTAN MEDOXOMIL. [Concomitant]
     Active Substance: OLMESARTAN MEDOXOMIL
     Indication: HYPERTENSION
     Dosage: 5 MG, QD
     Route: 048
     Dates: start: 2012
  4. RISPERIDONE. [Suspect]
     Active Substance: RISPERIDONE
     Indication: IRRITABLE BOWEL SYNDROME
     Dosage: 1 MG, QD, 1 MG ONCE DAILY
     Dates: start: 2012, end: 201609

REACTIONS (2)
  - Off label use [Unknown]
  - Memory impairment [Recovered/Resolved with Sequelae]

NARRATIVE: CASE EVENT DATE: 2013
